FAERS Safety Report 6050054-4 (Version None)
Quarter: 2009Q1

REPORT INFORMATION
  Report Type: 
  Country: None (occurrence: None)
  Receive Date: 20090121
  Receipt Date: 20090106
  Transmission Date: 20090719
  Serious: Yes (Other)
  Sender: FDA-Public Use
  Company Number: 036609

PATIENT
  Age: 27 Year
  Sex: Female

DRUGS (4)
  1. CLARAVIS [Suspect]
     Dosage: 40 MG, QD, ORAL; 40 MG, QD, ORAL
     Route: 048
     Dates: start: 20081021, end: 20081103
  2. CLARAVIS [Suspect]
     Dosage: 40 MG, QD, ORAL; 40 MG, QD, ORAL
     Route: 048
     Dates: start: 20080809
  3. ACCUTANE [Suspect]
     Dosage: 40 MG, QD, ORAL
     Route: 048
     Dates: start: 20080923
  4. ORAL CONTRACEPTIVE [Concomitant]

REACTIONS (5)
  - DRUG EXPOSURE DURING PREGNANCY [None]
  - INAPPROPRIATE SCHEDULE OF DRUG ADMINISTRATION [None]
  - PREGNANCY ON ORAL CONTRACEPTIVE [None]
  - TREATMENT NONCOMPLIANCE [None]
  - VOMITING [None]
